FAERS Safety Report 7425867-4 (Version None)
Quarter: 2011Q2

REPORT INFORMATION
  Report Type: 
  Country: None (occurrence: None)
  Receive Date: 20110420
  Receipt Date: 20110408
  Transmission Date: 20111010
  Serious: Yes (Disabling)
  Sender: FDA-Public Use
  Company Number: GB-JNJFOC-20110401962

PATIENT
  Age: 79 Year
  Sex: Male
  Weight: 86.2 kg

DRUGS (8)
  1. IBUPROFEN [Concomitant]
  2. LISINOPRIL [Concomitant]
  3. OMEPRAZOLE [Concomitant]
  4. TRAMADOL HCL [Suspect]
     Indication: PRODUCT USED FOR UNKNOWN INDICATION
     Route: 065
  5. ATORVASTATIN [Concomitant]
  6. PARACETAMOL [Concomitant]
  7. ASPIRIN [Concomitant]
  8. ATENOLOL [Concomitant]

REACTIONS (2)
  - CONFUSIONAL STATE [None]
  - NERVOUS SYSTEM DISORDER [None]
